FAERS Safety Report 16540073 (Version 2)
Quarter: 2019Q4

REPORT INFORMATION
  Report Type: Spontaneous
  Country: US (occurrence: US)
  Receive Date: 20190708
  Receipt Date: 20191018
  Transmission Date: 20200122
  Serious: Yes (Other)
  Sender: FDA-Public Use
  Company Number: US-ELI_LILLY_AND_COMPANY-US201907001215

PATIENT
  Sex: Male

DRUGS (4)
  1. CIALIS [Suspect]
     Active Substance: TADALAFIL
     Indication: ERECTILE DYSFUNCTION
     Dosage: 2 INJECTIONS, MONTHLY (1/M)
     Route: 065
     Dates: start: 1993, end: 2000
  2. LEVITRA [Concomitant]
     Active Substance: VARDENAFIL HYDROCHLORIDE
     Indication: ERECTILE DYSFUNCTION
     Dosage: 20 MG, MONTHLY (1/M)
     Dates: start: 20070828, end: 201109
  3. VIAGRA [Suspect]
     Active Substance: SILDENAFIL CITRATE
     Indication: ERECTILE DYSFUNCTION
     Dosage: 2 INJECTIONS, MONTHLY (1/M)
     Route: 065
     Dates: start: 1993, end: 2001
  4. VIAGRA [Suspect]
     Active Substance: SILDENAFIL CITRATE
     Dosage: 100 MG (2 PILLS), MONTHLY (1/M)
     Route: 065
     Dates: start: 20120512, end: 201511

REACTIONS (14)
  - Anosmia [Not Recovered/Not Resolved]
  - Dry mouth [Not Recovered/Not Resolved]
  - Fatigue [Unknown]
  - Rash [Not Recovered/Not Resolved]
  - Basal cell carcinoma [Unknown]
  - Emotional distress [Unknown]
  - Ageusia [Not Recovered/Not Resolved]
  - Malignant melanoma stage IV [Unknown]
  - Actinic keratosis [Unknown]
  - Anxiety [Unknown]
  - Anxiety [Unknown]
  - Varicose vein [Recovered/Resolved]
  - Lymphoedema [Not Recovered/Not Resolved]
  - Sleep apnoea syndrome [Unknown]

NARRATIVE: CASE EVENT DATE: 2008
